FAERS Safety Report 13097149 (Version 14)
Quarter: 2024Q2

REPORT INFORMATION
  Report Type: Report from Study
  Country: JP (occurrence: JP)
  Receive Date: 20170109
  Receipt Date: 20240405
  Transmission Date: 20240716
  Serious: Yes (Death, Hospitalization, Disabling)
  Sender: FDA-Public Use
  Company Number: JP-BRISTOL-MYERS SQUIBB COMPANY-BMS-2014-003752

PATIENT

DRUGS (20)
  1. METRELEPTIN [Suspect]
     Active Substance: METRELEPTIN
     Indication: Lipoatrophy
     Dosage: 0.08 MG/KG
  2. METRELEPTIN [Suspect]
     Active Substance: METRELEPTIN
     Indication: Congenital generalised lipodystrophy
     Dosage: 2.5 MG, QD
     Route: 058
     Dates: start: 20031021, end: 20130816
  3. METRELEPTIN [Suspect]
     Active Substance: METRELEPTIN
     Dosage: 2.5 MG, QD
     Route: 058
     Dates: start: 20130817, end: 20130817
  4. METRELEPTIN [Suspect]
     Active Substance: METRELEPTIN
     Dosage: 2.5 MG, QD
     Route: 058
     Dates: start: 20130830
  5. METRELEPTIN [Suspect]
     Active Substance: METRELEPTIN
     Dosage: 2.5 MG, QD
     Route: 058
     Dates: start: 20140808, end: 20140911
  6. METRELEPTIN [Suspect]
     Active Substance: METRELEPTIN
     Dosage: 2.5 MG, QD
     Route: 058
     Dates: start: 20161212, end: 20161223
  7. METRELEPTIN [Suspect]
     Active Substance: METRELEPTIN
     Dosage: 2.56 MILLIGRAM
     Route: 058
     Dates: end: 20220405
  8. METRELEPTIN [Suspect]
     Active Substance: METRELEPTIN
     Dosage: 1.28 MILLIGRAM
     Route: 058
     Dates: start: 20220406
  9. CANDESARTAN CILEXETIL [Concomitant]
     Active Substance: CANDESARTAN CILEXETIL
     Indication: Product used for unknown indication
     Dosage: 8 MG, QD
     Route: 048
     Dates: end: 20140108
  10. RINDERON VG [Concomitant]
     Active Substance: BETAMETHASONE VALERATE\GENTAMICIN SULFATE
     Indication: Product used for unknown indication
     Dosage: UNK
     Dates: end: 20130817
  11. UNISIA [Concomitant]
     Active Substance: AMLODIPINE BESYLATE\CANDESARTAN CILEXETIL
     Indication: Product used for unknown indication
     Dosage: 1 DOSAGE FORM/DAY
     Route: 048
     Dates: start: 20140109
  12. BEZAFIBRATE [Concomitant]
     Active Substance: BEZAFIBRATE
     Indication: Product used for unknown indication
     Dosage: 200 MG, QD
     Route: 048
     Dates: start: 20140109
  13. BEZAFIBRATE [Concomitant]
     Active Substance: BEZAFIBRATE
     Indication: Product used for unknown indication
     Dosage: 200 MG, QD
     Route: 048
  14. ASPIRIN\VONOPRAZAN FUMARATE [Concomitant]
     Active Substance: ASPIRIN\VONOPRAZAN FUMARATE
     Indication: Aortic valve stenosis
     Dosage: 1 DOSAGE FORM
     Route: 048
     Dates: start: 20210323
  15. DAPAGLIFLOZIN [Concomitant]
     Active Substance: DAPAGLIFLOZIN
     Indication: Lipoatrophy
     Dosage: 5 MILLIGRAM, QD
     Route: 048
     Dates: start: 20210727
  16. AMLODIPINE [Concomitant]
     Active Substance: AMLODIPINE BESYLATE
     Indication: Lipoatrophy
     Dosage: 5 MILLIGRAM, QD
     Route: 048
  17. CANDESARTAN [Concomitant]
     Active Substance: CANDESARTAN
     Indication: Lipoatrophy
     Dosage: 4 MILLIGRAM, QD
     Route: 048
  18. BISOPROLOL [Concomitant]
     Active Substance: BISOPROLOL\BISOPROLOL FUMARATE
     Indication: Aortic valve stenosis
     Dosage: 3.75 MILLIGRAM, QD
     Route: 048
  19. PEMAFIBRATE [Concomitant]
     Active Substance: PEMAFIBRATE
     Indication: Lipoatrophy
     Dosage: 0.4 MILLIGRAM, QD
     Route: 048
     Dates: start: 20191029
  20. FUROSEMIDE [Concomitant]
     Active Substance: FUROSEMIDE
     Indication: Product used for unknown indication

REACTIONS (6)
  - Death [Fatal]
  - Aortic valve stenosis [Recovering/Resolving]
  - Coronary artery stenosis [Recovered/Resolved]
  - Dehydration [Recovered/Resolved]
  - Stomatitis [Recovered/Resolved]
  - Silent thyroiditis [Recovering/Resolving]

NARRATIVE: CASE EVENT DATE: 20141101
